FAERS Safety Report 19200689 (Version 1)
Quarter: 2021Q2

REPORT INFORMATION
  Report Type: Spontaneous
  Country: US (occurrence: US)
  Receive Date: 20210430
  Receipt Date: 20210430
  Transmission Date: 20210717
  Serious: Yes (Life-Threatening)
  Sender: FDA-Public Use
  Company Number: US-STANDARD HOMEOPATHIC COMPANY-2110057

PATIENT
  Age: 80 Year
  Sex: Female

DRUGS (1)
  1. HYLAND^S ARNICA MONTANA 30X [Suspect]
     Active Substance: ARNICA MONTANA\HERBALS\HOMEOPATHICS
     Indication: CONTUSION
     Route: 048
     Dates: start: 20210416, end: 20210416

REACTIONS (4)
  - Dizziness [Unknown]
  - Atrial fibrillation [Unknown]
  - Insomnia [Unknown]
  - Dyspnoea [Unknown]

NARRATIVE: CASE EVENT DATE: 20210417
